FAERS Safety Report 6992931-3 (Version None)
Quarter: 2010Q3

REPORT INFORMATION
  Report Type: 
  Country: None (occurrence: None)
  Receive Date: 20100916
  Receipt Date: 20100916
  Transmission Date: 20110219
  Serious: Yes (Hospitalization)
  Sender: FDA-Public Use
  Company Number: None

PATIENT
  Age: 58 Year
  Sex: Female
  Weight: 91.5812 kg

DRUGS (1)
  1. LANTUS SOLOSTAR 100 UNITS/ ML U-100- SANOFI AVENTIS [Suspect]
     Indication: TYPE 2 DIABETES MELLITUS
     Dosage: 8 UNITS DAILY CUTANEOUS
     Route: 003
     Dates: start: 20100903, end: 20100911

REACTIONS (8)
  - BRONCHIAL HYPERREACTIVITY [None]
  - CHEST DISCOMFORT [None]
  - DYSPNOEA [None]
  - FATIGUE [None]
  - HEART RATE INCREASED [None]
  - OXYGEN SATURATION DECREASED [None]
  - PAIN [None]
  - WHEEZING [None]
